FAERS Safety Report 7983333-1 (Version None)
Quarter: 2011Q4

REPORT INFORMATION
  Report Type: 
  Country: None (occurrence: None)
  Receive Date: 20111215
  Receipt Date: 20111207
  Transmission Date: 20120403
  Serious: Yes (Other)
  Sender: FDA-Public Use
  Company Number: DE-TEVA-311030GER

PATIENT
  Age: 48 Year
  Sex: Female

DRUGS (2)
  1. PREDNISOLONE [Suspect]
     Indication: SINUSITIS
     Dosage: 60 MILLIGRAM;
     Route: 048
  2. CIPROFLOXACIN [Concomitant]
     Indication: SINUSITIS

REACTIONS (1)
  - CHORIORETINOPATHY [None]
